FAERS Safety Report 25237583 (Version 4)
Quarter: 2025Q2

REPORT INFORMATION
  Report Type: Report from Study
  Country: CN (occurrence: CN)
  Receive Date: 20250425
  Receipt Date: 20250603
  Transmission Date: 20250716
  Serious: Yes (Other)
  Sender: ROCHE
  Company Number: CN-ROCHE-10000267467

PATIENT
  Age: 58 Year
  Sex: Male

DRUGS (1)
  1. GLOFITAMAB [Suspect]
     Active Substance: GLOFITAMAB
     Indication: Diffuse large B-cell lymphoma
     Dosage: STRENGTH 10 MG (10ML) PER VIAL
     Route: 042
     Dates: start: 20241028

REACTIONS (3)
  - Intestinal fistula [Unknown]
  - Abdominal discomfort [Recovered/Resolved]
  - Neoplasm [Unknown]
